FAERS Safety Report 15666958 (Version 1)
Quarter: 2018Q4

REPORT INFORMATION
  Report Type: Spontaneous
  Country: US (occurrence: US)
  Receive Date: 20181128
  Receipt Date: 20181128
  Transmission Date: 20190205
  Serious: No
  Sender: FDA-Public Use
  Company Number: US-ROCHE-2157796

PATIENT
  Sex: Female

DRUGS (1)
  1. OCREVUS [Suspect]
     Active Substance: OCRELIZUMAB
     Indication: RELAPSING MULTIPLE SCLEROSIS
     Dosage: SHE RECEIVED HER SECOND DOSE OF OCRELIZUMAB ON 25/JUN/2018.
     Route: 065
     Dates: start: 20180611

REACTIONS (2)
  - Arthralgia [Not Recovered/Not Resolved]
  - Feeling abnormal [Unknown]
